FAERS Safety Report 8901571 (Version 1)
Quarter: 2012Q4

REPORT INFORMATION
  Report Type: Spontaneous
  Country: US (occurrence: None)
  Receive Date: 20121108
  Receipt Date: 20121108
  Transmission Date: 20130627
  Serious: No
  Sender: FDA-Public Use
  Company Number: None

PATIENT
  Age: 79 Year
  Sex: Female
  Weight: 69.4 kg

DRUGS (1)
  1. LEVOPHED [Suspect]
     Indication: BLOOD PRESSURE MANAGEMENT
     Dosage: titrated q 10 min
     Route: 042
     Dates: start: 20121106, end: 20121107

REACTIONS (1)
  - Unevaluable event [None]
